FAERS Safety Report 8973773 (Version 1)
Quarter: 2012Q4

REPORT INFORMATION
  Report Type: 
  Country: US (occurrence: US)
  Receive Date: 20121218
  Receipt Date: 20121218
  Transmission Date: 20130627
  Serious: Yes (Other)
  Sender: FDA-Public Use
  Company Number: US-BRISTOL-MYERS SQUIBB COMPANY-16411621

PATIENT
  Age: 64 Year
  Sex: Female
  Weight: 66.66 kg

DRUGS (13)
  1. ABILIFY TABS 5 MG [Suspect]
     Indication: MAJOR DEPRESSION
     Dosage: 1-5mg.max ds:5mg,Bottle 1*30US
Stp May10,restarted Jun10,disco:Nov11,Abilify tabs 2mg:5914-0006-13
     Dates: start: 2008
  2. ABILIFY TABS 5 MG [Suspect]
     Indication: DEPRESSION
     Dosage: 1-5mg.max ds:5mg,Bottle 1*30US
Stp May10,restarted Jun10,disco:Nov11,Abilify tabs 2mg:5914-0006-13
     Dates: start: 2008
  3. CYMBALTA [Concomitant]
     Dosage: Dec08-low dose, apr10-60,sep10 to Nov10-120,
     Dates: start: 200812
  4. KLONOPIN [Concomitant]
     Indication: ANXIETY
     Dosage: May10-dose increased, sep10-1mg td,
  5. AMANTADINE [Concomitant]
  6. TARKA [Concomitant]
  7. ARTANE [Concomitant]
     Dates: end: 201007
  8. SYNTHROID [Concomitant]
  9. TENORMIN [Concomitant]
  10. DURAGESIC PATCH [Concomitant]
  11. PROTONIX [Concomitant]
  12. VITAMIN B12 [Concomitant]
  13. VITAMIN D [Concomitant]
     Dosage: 1FD:1000 units

REACTIONS (3)
  - Depression [Not Recovered/Not Resolved]
  - Akathisia [Not Recovered/Not Resolved]
  - Contusion [Unknown]
